FAERS Safety Report 24106401 (Version 1)
Quarter: 2024Q3

REPORT INFORMATION
  Report Type: Spontaneous
  Country: US (occurrence: None)
  Receive Date: 20240716
  Receipt Date: 20240716
  Transmission Date: 20241017
  Serious: No
  Sender: Public
  Company Number: None

PATIENT
  Age: 40 Year
  Sex: Female
  Weight: 51.75 kg

DRUGS (12)
  1. BUPROPION [Suspect]
     Active Substance: BUPROPION
     Indication: Bipolar I disorder
     Dosage: 1 CAPSULE DAILY ORAL
     Route: 048
     Dates: start: 20230401, end: 20240715
  2. MAGNESIUM [Concomitant]
     Active Substance: MAGNESIUM
  3. ZINC [Concomitant]
     Active Substance: ZINC
  4. MANGANESE [Concomitant]
  5. VITAMIN C [Concomitant]
     Active Substance: ASCORBIC ACID
  6. VITAMIN B COMPLEX [Concomitant]
     Active Substance: CYANOCOBALAMIN\DEXPANTHENOL\NIACINAMIDE\PYRIDOXINE HYDROCHLORIDE\RIBOFLAVIN 5^-PHOSPHATE SODIUM\THIA
  7. MOLYBDENUM [Concomitant]
     Active Substance: MOLYBDENUM
  8. VITAMIN D3 WITH K [Concomitant]
  9. LIVER NUTRIENTS [Concomitant]
  10. OMEGA-3 ACIDS [Concomitant]
     Active Substance: OMEGA-3 FATTY ACIDS
  11. PROBIOTICS NOS [Concomitant]
     Active Substance: PROBIOTICS NOS
  12. LIQUID MULTIVITAMIN [Concomitant]

REACTIONS (3)
  - Neck pain [None]
  - Muscle spasms [None]
  - Eye pain [None]

NARRATIVE: CASE EVENT DATE: 20230401
